FAERS Safety Report 21404717 (Version 3)
Quarter: 2022Q4

REPORT INFORMATION
  Report Type: Report from Study
  Country: DO (occurrence: DO)
  Receive Date: 20221003
  Receipt Date: 20221122
  Transmission Date: 20230112
  Serious: Yes (Hospitalization, Other)
  Sender: FDA-Public Use
  Company Number: DO-JNJFOC-20220815843

PATIENT
  Age: 82 Year
  Sex: Male
  Weight: 74 kg

DRUGS (1)
  1. IMBRUVICA [Suspect]
     Active Substance: IBRUTINIB
     Indication: Chronic lymphocytic leukaemia
     Route: 048
     Dates: start: 20210331

REACTIONS (4)
  - Procedural haemorrhage [Unknown]
  - Lipoma [Unknown]
  - Cardiomegaly [Unknown]
  - Wound [Recovered/Resolved]

NARRATIVE: CASE EVENT DATE: 20220601
